FAERS Safety Report 11489915 (Version 1)
Quarter: 2015Q3

REPORT INFORMATION
  Report Type: Spontaneous
  Country: BR (occurrence: BR)
  Receive Date: 20150910
  Receipt Date: 20150910
  Transmission Date: 20151125
  Serious: Yes (Other)
  Sender: FDA-Public Use
  Company Number: BR-PFIZER INC-2015296256

PATIENT
  Age: 71 Year
  Sex: Female

DRUGS (1)
  1. NORVASC [Suspect]
     Active Substance: AMLODIPINE BESYLATE
     Indication: CARDIAC DISORDER
     Dosage: 10 MG, UNK
     Route: 048
     Dates: start: 201412

REACTIONS (4)
  - Angina pectoris [Unknown]
  - Hypertension [Unknown]
  - Dementia [Unknown]
  - Diabetes mellitus [Unknown]
